FAERS Safety Report 23508447 (Version 1)
Quarter: 2024Q1

REPORT INFORMATION
  Report Type: Spontaneous
  Country: FR (occurrence: None)
  Receive Date: 20240209
  Receipt Date: 20240209
  Transmission Date: 20240410
  Serious: Yes (Death)
  Sender: FDA-Public Use
  Company Number: 2024A032160

PATIENT
  Age: 35 Year
  Sex: Male

DRUGS (7)
  1. QUETIAPINE [Suspect]
     Active Substance: QUETIAPINE
     Dates: end: 202401
  2. LOXAPINE [Suspect]
     Active Substance: LOXAPINE
     Dates: end: 202401
  3. CYAMEMAZINE [Suspect]
     Active Substance: CYAMEMAZINE
     Dates: end: 202401
  4. COCAINE [Suspect]
     Active Substance: COCAINE
     Dates: end: 202401
  5. DRONABINOL [Suspect]
     Active Substance: DRONABINOL
     Dates: end: 202401
  6. DIAZEPAM [Suspect]
     Active Substance: DIAZEPAM
     Dates: end: 202401
  7. ZOPICLONE [Suspect]
     Active Substance: ZOPICLONE
     Dates: end: 202401

REACTIONS (2)
  - Poisoning [Fatal]
  - Drug abuse [Fatal]

NARRATIVE: CASE EVENT DATE: 20240101
